FAERS Safety Report 6662986-4 (Version None)
Quarter: 2010Q1

REPORT INFORMATION
  Report Type: 
  Country: None (occurrence: None)
  Receive Date: 20100322
  Receipt Date: 20100310
  Transmission Date: 20100710
  Serious: No
  Sender: FDA-Public Use
  Company Number: 2010-00328

PATIENT
  Age: 84 Year
  Sex: Male
  Weight: 83.9154 kg

DRUGS (6)
  1. ZICAM COLD REMEDY GEL SWABS [Suspect]
     Dosage: SPORADIC, 2 YEARS; 2 YRS AGO-WINTER
     Dates: end: 20090101
  2. METOPROLOL [Concomitant]
  3. METAMUCIL-2 [Concomitant]
  4. LIPITOR [Concomitant]
  5. LEXAPRO [Concomitant]
  6. LORAZEPAM [Concomitant]

REACTIONS (1)
  - ANOSMIA [None]
